FAERS Safety Report 23838596 (Version 2)
Quarter: 2024Q2

REPORT INFORMATION
  Report Type: Spontaneous
  Country: PT (occurrence: PT)
  Receive Date: 20240509
  Receipt Date: 20240525
  Transmission Date: 20240715
  Serious: Yes (Other)
  Sender: FDA-Public Use
  Company Number: PT-TEVA-VS-3195620

PATIENT
  Age: 6 Decade
  Sex: Female

DRUGS (1)
  1. SUNITINIB [Suspect]
     Active Substance: SUNITINIB
     Indication: Renal cell carcinoma
     Dosage: 50MG A DAY WITH TWO WEEKS INTERVAL WITHOUT SUNITINIB EACH FOUR WEEKS
     Route: 065

REACTIONS (2)
  - Skin toxicity [Recovering/Resolving]
  - Hand dermatitis [Recovering/Resolving]
